FAERS Safety Report 16780736 (Version 2)
Quarter: 2019Q3

REPORT INFORMATION
  Report Type: Spontaneous
  Country: DE (occurrence: DE)
  Receive Date: 20190906
  Receipt Date: 20190923
  Transmission Date: 20191005
  Serious: Yes (Death, Other)
  Sender: FDA-Public Use
  Company Number: DE-BRACCO-2019DE04384

PATIENT
  Age: 27 Year
  Sex: Female

DRUGS (11)
  1. SPIRONOLACTON [Concomitant]
     Active Substance: SPIRONOLACTONE
     Dosage: 50 MG
     Route: 048
  2. ATROVENT [Concomitant]
     Active Substance: IPRATROPIUM BROMIDE
  3. IRON [Concomitant]
     Active Substance: IRON
     Dosage: 100 MG
     Route: 048
  4. SALBUTAMOL [Concomitant]
     Active Substance: ALBUTEROL
     Dosage: UNK
  5. TIOTROPIUM [Concomitant]
     Active Substance: TIOTROPIUM
     Dosage: 18 ?G, INHALATION
  6. ILOPROST. [Concomitant]
     Active Substance: ILOPROST
     Dosage: 5 ML
  7. OXYGEN. [Concomitant]
     Active Substance: OXYGEN
     Dosage: UNK L
     Route: 055
  8. NACL [Concomitant]
     Active Substance: SODIUM CHLORIDE
     Dosage: 5 ML, SINGLE
     Route: 042
     Dates: start: 20190827, end: 20190827
  9. TADAFIL [Concomitant]
     Active Substance: TADALAFIL
     Dosage: 20 MG
     Route: 048
  10. SONOVUE [Suspect]
     Active Substance: SULFUR HEXAFLUORIDE
     Indication: ULTRASOUND ABDOMEN
     Dosage: 1 ML, SINGLE
     Route: 042
     Dates: start: 20190827, end: 20190827
  11. MACITENTAN [Concomitant]
     Active Substance: MACITENTAN
     Dosage: 10 MG
     Route: 048

REACTIONS (7)
  - Labelled drug-disease interaction medication error [Unknown]
  - Feeling abnormal [Fatal]
  - Dyspnoea [Fatal]
  - Off label use [Unknown]
  - Hypotension [Fatal]
  - Cyanosis [Fatal]
  - Respiratory failure [Fatal]

NARRATIVE: CASE EVENT DATE: 20190827
